FAERS Safety Report 7895814 (Version 6)
Quarter: 2013Q1

REPORT INFORMATION
  Report Type: Spontaneous
  Country: US (occurrence: US)
  Receive Date: 20110412
  Receipt Date: 20130103
  Transmission Date: 20140127
  Serious: Yes (Hospitalization, Congenital Anomaly, Other)
  Sender: FDA-Public Use
  Company Number: US-PFIZER INC-2011077285

PATIENT
  Sex: Female
  Weight: 3 kg

DRUGS (7)
  1. SERTRALINE HCL [Suspect]
     Dosage: 30 TABLETS FOR 30 DAYS
     Route: 064
     Dates: start: 20100312, end: 201004
  2. ZOLOFT [Suspect]
     Dosage: UNK
     Route: 064
     Dates: start: 201003, end: 201004
  3. PRENATAL VITAMINS [Concomitant]
     Dosage: UNK
     Route: 064
     Dates: start: 20100920
  4. TRICHLOROACETIC ACID [Concomitant]
     Dosage: UNK
     Route: 064
     Dates: start: 20100630
  5. CITALOPRAM [Concomitant]
     Dosage: UNK
     Route: 064
  6. IBUPROFEN [Concomitant]
     Dosage: UNK
     Route: 064
  7. ZATEAN - PN [Concomitant]
     Dosage: SOFT GEL
     Route: 064

REACTIONS (8)
  - Foetal exposure during pregnancy [Unknown]
  - Anal atresia [Unknown]
  - Ventricular septal defect [Recovered/Resolved]
  - Patent ductus arteriosus [Recovered/Resolved]
  - Congenital pulmonary hypertension [Recovered/Resolved]
  - Atrial septal defect [Recovered/Resolved]
  - Jaundice neonatal [Unknown]
  - Congenital anomaly [Unknown]
